FAERS Safety Report 24758693 (Version 1)
Quarter: 2024Q4

REPORT INFORMATION
  Report Type: Spontaneous
  Country: US (occurrence: US)
  Receive Date: 20241220
  Receipt Date: 20241220
  Transmission Date: 20250114
  Serious: No
  Sender: ABBVIE
  Company Number: US-ABBVIE-6050489

PATIENT
  Age: 34 Year
  Sex: Female
  Weight: 91 kg

DRUGS (1)
  1. HUMIRA [Suspect]
     Active Substance: ADALIMUMAB
     Indication: Psoriasis
     Dosage: FORM STRENGTH: 40 MILLIGRAM
     Route: 058
     Dates: start: 202311, end: 20241004

REACTIONS (3)
  - Human chorionic gonadotropin decreased [Recovered/Resolved]
  - Failed in vitro fertilisation [Not Recovered/Not Resolved]
  - Human chorionic gonadotropin abnormal [Recovered/Resolved]

NARRATIVE: CASE EVENT DATE: 20240701
